FAERS Safety Report 17836602 (Version 3)
Quarter: 2020Q3

REPORT INFORMATION
  Report Type: Spontaneous
  Country: PL (occurrence: PL)
  Receive Date: 20200529
  Receipt Date: 20200704
  Transmission Date: 20201103
  Serious: Yes (Other)
  Sender: FDA-Public Use
  Company Number: PL-AUROBINDO-AUR-APL-2020-026329

PATIENT
  Age: 22 Year
  Sex: Female

DRUGS (9)
  1. LEVETIRACETAM. [Interacting]
     Active Substance: LEVETIRACETAM
     Indication: EPILEPSY
     Dosage: 1500 MILLIGRAM, ONCE A DAY
     Route: 065
  2. LACOSAMIDE. [Interacting]
     Active Substance: LACOSAMIDE
     Dosage: 450 MILLIGRAM, ONCE A DAY (THE LCM DOSE WAS INCREASED TO 450 MG DAILY)
     Route: 065
  3. SERTRALINE [Concomitant]
     Active Substance: SERTRALINE HYDROCHLORIDE
     Indication: DEPRESSED MOOD
     Dosage: 50 MILLIGRAM, EVERY MORNING
     Route: 065
  4. LACOSAMIDE. [Interacting]
     Active Substance: LACOSAMIDE
     Dosage: 500 MILLIGRAM, ONCE A DAY, THE LCM DOSE WAS RAISED TO 500 MG DAILY
     Route: 065
  5. LAMOTRIGINE. [Interacting]
     Active Substance: LAMOTRIGINE
     Dosage: 250 MILLIGRAM, ONCE A DAY
     Route: 065
  6. LAMOTRIGINE. [Interacting]
     Active Substance: LAMOTRIGINE
     Dosage: 200 MILLIGRAM, ONCE A DAY (ATTEMPT TO INCREASE THE LTG DOSE TO 300)
     Route: 065
  7. LAMOTRIGINE. [Suspect]
     Active Substance: LAMOTRIGINE
     Indication: EPILEPSY
     Dosage: 200 MILLIGRAM, ONCE A DAY
     Route: 065
  8. LAMOTRIGINE. [Interacting]
     Active Substance: LAMOTRIGINE
     Dosage: 300 MILLIGRAM, ONCE A DAY
     Route: 065
  9. LACOSAMIDE. [Interacting]
     Active Substance: LACOSAMIDE
     Indication: EPILEPSY
     Dosage: 300 MILLIGRAM, ONCE A DAY
     Route: 065

REACTIONS (6)
  - Off label use [Unknown]
  - Therapeutic product effect incomplete [Unknown]
  - Drug interaction [Unknown]
  - Dizziness [Unknown]
  - Neurotoxicity [Recovered/Resolved]
  - Diplopia [Unknown]
